FAERS Safety Report 18234830 (Version 2)
Quarter: 2021Q1

REPORT INFORMATION
  Report Type: Spontaneous
  Country: CA (occurrence: CA)
  Receive Date: 20200904
  Receipt Date: 20210326
  Transmission Date: 20210419
  Serious: Yes (Other)
  Sender: FDA-Public Use
  Company Number: CA-ASTRAZENECA-2020SF09711

PATIENT
  Age: 65 Year
  Sex: Female

DRUGS (10)
  1. DIVALPROEX SODIUM. [Concomitant]
     Active Substance: DIVALPROEX SODIUM
     Dosage: 3.0MG UNKNOWN
     Route: 065
  2. PROPANOLOL [Concomitant]
     Active Substance: PROPRANOLOL HYDROCHLORIDE
     Dosage: SOMETIMES TAKEN,
     Route: 065
  3. VALPROIC ACID. [Concomitant]
     Active Substance: VALPROIC ACID
     Indication: MOOD ALTERED
     Dosage: 750.0MG UNKNOWN
     Route: 065
     Dates: start: 20000305
  4. QUETIAPINE. [Suspect]
     Active Substance: QUETIAPINE
     Indication: BIPOLAR I DISORDER
     Dosage: 350.0MG UNKNOWN
     Route: 048
  5. MOCLOBEMIDE [Concomitant]
     Active Substance: MOCLOBEMIDE
     Dosage: HAD NOT BEEN USED FOR 1 WEEK
     Route: 065
  6. QUETIAPINE. [Suspect]
     Active Substance: QUETIAPINE
     Indication: ANXIETY DISORDER
     Dosage: 350.0MG UNKNOWN
     Route: 048
  7. LAMOTRIGINE. [Suspect]
     Active Substance: LAMOTRIGINE
     Indication: BIPOLAR I DISORDER
     Dosage: 50.0MG UNKNOWN
     Route: 048
  8. LAMOTRIGINE. [Suspect]
     Active Substance: LAMOTRIGINE
     Indication: ANXIETY DISORDER
     Dosage: 50.0MG UNKNOWN
     Route: 048
  9. CLONAZEPAM. [Concomitant]
     Active Substance: CLONAZEPAM
     Dosage: UP TO 2.25MG AT NIGHT
     Route: 065
  10. PANTOPRAZOLE [Suspect]
     Active Substance: PANTOPRAZOLE
     Indication: DYSPEPSIA
     Route: 065

REACTIONS (6)
  - Drug ineffective [Unknown]
  - Balance disorder [Unknown]
  - Quality of life decreased [Unknown]
  - Blepharospasm [Unknown]
  - Mass [Unknown]
  - Psychotic disorder [Recovered/Resolved]
